FAERS Safety Report 6592816-0 (Version None)
Quarter: 2010Q1

REPORT INFORMATION
  Report Type: 
  Country: None (occurrence: None)
  Receive Date: 20100212
  Receipt Date: 20100201
  Transmission Date: 20100710
  Serious: Yes (Hospitalization)
  Sender: FDA-Public Use
  Company Number: 496966

PATIENT
  Age: 11 Day
  Sex: Male

DRUGS (6)
  1. VANCOMYCIN HCL [Suspect]
     Indication: ANTIBIOTIC THERAPY
     Dosage: 15 MG/KG INTRAVENOUS DRIP
     Route: 041
  2. ROCURONIUM BROMIDE [Suspect]
     Indication: VENTRICULO-PERITONEAL SHUNT
     Dosage: INTRAVENOUS
     Route: 042
  3. SEVOFLURANE [Concomitant]
  4. (NITROUS OXIDE) [Concomitant]
  5. (GLYCOPYRROLATE /00196202/) [Concomitant]
  6. FENTANYL CITRATE [Concomitant]

REACTIONS (4)
  - DRUG HYPERSENSITIVITY [None]
  - PROCEDURAL HYPOTENSION [None]
  - RED MAN SYNDROME [None]
  - STRIDOR [None]
